FAERS Safety Report 9158028 (Version 1)
Quarter: 2013Q1

REPORT INFORMATION
  Report Type: Report from Study
  Country: BR (occurrence: BR)
  Receive Date: 20130312
  Receipt Date: 20130312
  Transmission Date: 20140127
  Serious: Yes (Other)
  Sender: FDA-Public Use
  Company Number: BR-ABBOTT-13P-020-1032519-00

PATIENT
  Age: 46 Year
  Sex: Female
  Weight: 74 kg

DRUGS (7)
  1. HUMIRA [Suspect]
     Indication: CROHN^S DISEASE
     Dosage: DAY 0
     Route: 058
     Dates: start: 20121029, end: 201211
  2. HUMIRA [Suspect]
     Dosage: DAY 14
     Route: 058
  3. HUMIRA [Suspect]
     Route: 058
  4. HYDROCHLOROTHIAZIDE W/LOSARTAN [Concomitant]
     Indication: BLOOD PRESSURE
     Route: 048
  5. NEBIVOLOL HYDROCHLORIDE [Concomitant]
     Indication: ARRHYTHMIA
     Route: 048
  6. TRAZODONE HYDROCHLORIDE [Concomitant]
     Indication: ANTIDEPRESSANT THERAPY
     Route: 048
  7. VENLAXIN [Concomitant]
     Indication: ANTIDEPRESSANT THERAPY

REACTIONS (4)
  - Breast cancer [Recovering/Resolving]
  - Crohn^s disease [Unknown]
  - Pain [Unknown]
  - Diarrhoea [Unknown]
